FAERS Safety Report 5127272-2 (Version None)
Quarter: 2006Q4

REPORT INFORMATION
  Report Type: 
  Country: None (occurrence: None)
  Receive Date: 20061010
  Receipt Date: 20060926
  Transmission Date: 20070319
  Serious: Yes (Hospitalization, Disabling)
  Sender: FDA-Public Use
  Company Number: 230503

PATIENT
  Age: 27 Year
  Sex: Female
  Weight: 56 kg

DRUGS (1)
  1. MABTHERA(RITUXIMAB) CONC FOR SOLUTION FOR INFUSION [Suspect]
     Indication: CONNECTIVE TISSUE DISORDER
     Dosage: 1 G, INTRAVENOUS
     Route: 042
     Dates: start: 20060816

REACTIONS (5)
  - ISCHAEMIA [None]
  - ISCHAEMIC LIMB PAIN [None]
  - POLYARTHRITIS [None]
  - RAYNAUD'S PHENOMENON [None]
  - SERUM SICKNESS [None]
